FAERS Safety Report 4345009-1 (Version None)
Quarter: 2004Q2

REPORT INFORMATION
  Report Type: 
  Country: None (occurrence: None)
  Receive Date: 20040420
  Receipt Date: 20040405
  Transmission Date: 20050107
  Serious: Yes (Hospitalization)
  Sender: FDA-Public Use
  Company Number: 235929

PATIENT
  Age: 1 Day
  Sex: Female
  Weight: 3.3 kg

DRUGS (9)
  1. INSULIN ASPART [Suspect]
     Dosage: 32 IU,QD, SUBCUTANEOUS
     Route: 064
     Dates: start: 20030626
  2. PROTAPHANE PENFILL (INSULIN HUMAN) SUSPENSION FOR INJECTION [Concomitant]
  3. RANIMEX (RANITIDINE HYDROCHLORIDE) [Concomitant]
  4. GAVISCON [Concomitant]
  5. SODIUM CHLORIDE 0.9% [Concomitant]
  6. PETHIDINE (PETHIDINE) [Concomitant]
  7. SYNTOCINON [Concomitant]
  8. MORPHINE [Concomitant]
  9. ADALAT [Concomitant]

REACTIONS (3)
  - CAESAREAN SECTION [None]
  - HYPOGLYCAEMIA NEONATAL [None]
  - MATERNAL DRUGS AFFECTING FOETUS [None]
